FAERS Safety Report 6784980-5 (Version None)
Quarter: 2010Q2

REPORT INFORMATION
  Report Type: 
  Country: None (occurrence: None)
  Receive Date: 20100622
  Receipt Date: 20100615
  Transmission Date: 20101027
  Serious: Yes (Hospitalization)
  Sender: FDA-Public Use
  Company Number: GR-GILEAD-2010-0029881

PATIENT
  Sex: Male

DRUGS (1)
  1. ATRIPLA [Suspect]
     Indication: HIV INFECTION

REACTIONS (4)
  - RASH [None]
  - RENAL FAILURE [None]
  - SMALL INTESTINAL HAEMORRHAGE [None]
  - VASCULITIS GASTROINTESTINAL [None]
